FAERS Safety Report 5772420-4 (Version None)
Quarter: 2008Q2

REPORT INFORMATION
  Report Type: 
  Country: None (occurrence: None)
  Receive Date: 20080613
  Receipt Date: 20080603
  Transmission Date: 20081010
  Serious: Yes (Other)
  Sender: FDA-Public Use
  Company Number: TR-ELI_LILLY_AND_COMPANY-TR200806000859

PATIENT
  Age: 41 Year
  Sex: Female

DRUGS (3)
  1. HUMALOG [Suspect]
     Indication: GESTATIONAL DIABETES
     Route: 058
  2. HUMALOG [Suspect]
     Dosage: 8 IU, 2/D
     Route: 058
  3. HUMULIN N [Suspect]
     Indication: GESTATIONAL DIABETES
     Route: 058

REACTIONS (4)
  - AMNIORRHEXIS [None]
  - DRUG EXPOSURE DURING PREGNANCY [None]
  - FATIGUE [None]
  - SOMNOLENCE [None]
